FAERS Safety Report 9465282 (Version 1)
Quarter: 2013Q3

REPORT INFORMATION
  Report Type: Spontaneous
  Country: GB (occurrence: GB)
  Receive Date: 20130819
  Receipt Date: 20130819
  Transmission Date: 20140515
  Serious: Yes (Other)
  Sender: FDA-Public Use
  Company Number: PHHY2013GB086839

PATIENT
  Age: 33 Year
  Sex: Female

DRUGS (8)
  1. QUETIAPINE [Suspect]
     Indication: MOOD DISORDER DUE TO A GENERAL MEDICAL CONDITION
     Dosage: 50MG FOR 1 WEEK, 100MG NEXT WEEK, 200MG NEXT WEEK
     Route: 048
     Dates: start: 20130208
  2. QUETIAPINE [Suspect]
     Dosage: 50MG FOR 1 WEEK, 100MG NEXT WEEK, 200MG NEXT WEEK
     Route: 048
  3. QUETIAPINE [Suspect]
     Dosage: 50MG FOR 1 WEEK, 100MG NEXT WEEK, 200MG NEXT WEEK
     Route: 048
  4. DULOXETINE [Concomitant]
  5. PREGABALIN [Concomitant]
  6. LANSOPRAZOL [Concomitant]
  7. IBUPROFEN [Concomitant]
  8. PROPANOL [Concomitant]

REACTIONS (8)
  - Coordination abnormal [Recovering/Resolving]
  - Gait disturbance [Recovering/Resolving]
  - Movement disorder [Recovering/Resolving]
  - Drug prescribing error [Unknown]
  - Crying [Unknown]
  - Speech disorder [Recovering/Resolving]
  - Dysarthria [Unknown]
  - Somnolence [Recovering/Resolving]
